FAERS Safety Report 16664728 (Version 1)
Quarter: 2019Q3

REPORT INFORMATION
  Report Type: Spontaneous
  Country: US (occurrence: US)
  Receive Date: 20190803
  Receipt Date: 20190803
  Transmission Date: 20191004
  Serious: Yes (Death, Hospitalization, Other)
  Sender: FDA-Public Use
  Company Number: US-DRREDDYS-USA/USA/19/0112810

PATIENT
  Age: 59 Year
  Sex: Male
  Weight: 118 kg

DRUGS (4)
  1. DAPTOMYCIN FOR INJECTION [Suspect]
     Active Substance: DAPTOMYCIN
     Indication: STAPHYLOCOCCAL INFECTION
     Dosage: THE TREATMENT CHOSEN WAS DAPTOMYCIN 8 MG/KG (800 MG I.V. EVERY 48 H) IN COMBINATION WITH CEFTAROLINE
     Route: 042
  2. VANCOMYCIN [Suspect]
     Active Substance: VANCOMYCIN
     Indication: STAPHYLOCOCCAL INFECTION
     Dosage: VANCOMYCIN MIC, LESS THAN OR EQUAL TO 0.5 MG/LITER
     Route: 042
  3. TIGECYCLINE. [Suspect]
     Active Substance: TIGECYCLINE
     Indication: STAPHYLOCOCCAL INFECTION
     Route: 065
  4. QUINUPRISTIN [Suspect]
     Active Substance: QUINUPRISTIN
     Indication: STAPHYLOCOCCAL INFECTION
     Route: 065

REACTIONS (3)
  - Death [Fatal]
  - Eosinophilic pneumonia [Unknown]
  - Drug resistance [Unknown]
